FAERS Safety Report 6535028-9 (Version None)
Quarter: 2010Q1

REPORT INFORMATION
  Report Type: 
  Country: None (occurrence: None)
  Receive Date: 20100111
  Receipt Date: 20100111
  Transmission Date: 20100710
  Serious: Yes (Hospitalization)
  Sender: FDA-Public Use
  Company Number: None

PATIENT
  Age: 59 Year
  Sex: Male
  Weight: 83 kg

DRUGS (1)
  1. ROPIVACAINE 0.5% APP PHARMACEUTICALS [Suspect]
     Indication: NERVE BLOCK
     Dosage: 35 ML ONCE PERIARTICULAR
     Route: 052
     Dates: start: 20091222

REACTIONS (2)
  - ACIDOSIS [None]
  - GRAND MAL CONVULSION [None]
